FAERS Safety Report 15668207 (Version 1)
Quarter: 2018Q4

REPORT INFORMATION
  Report Type: Spontaneous
  Country: AT (occurrence: AT)
  Receive Date: 20181129
  Receipt Date: 20181129
  Transmission Date: 20190205
  Serious: Yes (Disabling, Other)
  Sender: FDA-Public Use
  Company Number: AT-TOLMAR, INC.-TOLG20180667

PATIENT
  Age: 45 Year
  Sex: Female

DRUGS (1)
  1. ACYCLOVIR. [Suspect]
     Active Substance: ACYCLOVIR
     Indication: HERPES SIMPLEX ENCEPHALITIS
     Dosage: 750 MG
     Route: 042

REACTIONS (9)
  - Intracranial pressure increased [Recovered/Resolved with Sequelae]
  - Disease progression [Recovered/Resolved with Sequelae]
  - Generalised tonic-clonic seizure [Recovered/Resolved with Sequelae]
  - Cognitive disorder [Not Recovered/Not Resolved]
  - Pathogen resistance [Recovered/Resolved with Sequelae]
  - Aphasia [Not Recovered/Not Resolved]
  - Underdose [None]
  - Respiratory failure [Recovered/Resolved with Sequelae]
  - Hemiparesis [Not Recovered/Not Resolved]
